FAERS Safety Report 6391877-1 (Version None)
Quarter: 2009Q4

REPORT INFORMATION
  Report Type: 
  Country: None (occurrence: None)
  Receive Date: 20091007
  Receipt Date: 20090930
  Transmission Date: 20100525
  Serious: Yes (Death)
  Sender: FDA-Public Use
  Company Number: TW-BAXTER-2009BH014979

PATIENT
  Sex: Female

DRUGS (3)
  1. DIANEAL [Suspect]
     Indication: PERITONEAL DIALYSIS
     Route: 033
     Dates: start: 20090801
  2. DIANEAL [Suspect]
     Route: 033
     Dates: start: 20090801
  3. DIANEAL [Suspect]
     Route: 033
     Dates: start: 20090601, end: 20090801

REACTIONS (1)
  - DEATH [None]
